FAERS Safety Report 24627655 (Version 2)
Quarter: 2025Q3

REPORT INFORMATION
  Report Type: Report from Study
  Country: EU (occurrence: EU)
  Receive Date: 20241116
  Receipt Date: 20250809
  Transmission Date: 20251020
  Serious: Yes (Other)
  Sender: ALEXION PHARMACEUTICALS
  Company Number: EU-AstraZeneca-2023A271901

PATIENT
  Age: 48 Year
  Sex: Female
  Weight: 74 kg

DRUGS (5)
  1. DURVALUMAB [Suspect]
     Active Substance: DURVALUMAB
     Indication: Hormone receptor positive breast cancer
     Dates: start: 20230922, end: 20231020
  2. OLECLUMAB [Suspect]
     Active Substance: OLECLUMAB
     Dosage: 300 MILLIGRAM, Q2W
     Dates: start: 20230922, end: 20231103
  3. PACLITAXEL [Suspect]
     Active Substance: PACLITAXEL
     Dosage: 144.8 MILLIGRAM, QW
     Dates: start: 20230922, end: 20231103
  4. CYCLOPHOSPHAMIDE [Suspect]
     Active Substance: CYCLOPHOSPHAMIDE
     Indication: Breast cancer
     Route: 065
  5. DOXORUBICIN HYDROCHLORIDE [Suspect]
     Active Substance: DOXORUBICIN HYDROCHLORIDE
     Indication: Breast cancer
     Route: 065

REACTIONS (1)
  - Lichenoid keratosis [Recovered/Resolved]

NARRATIVE: CASE EVENT DATE: 20231103
